FAERS Safety Report 7551844-9 (Version None)
Quarter: 2011Q2

REPORT INFORMATION
  Report Type: 
  Country: None (occurrence: None)
  Receive Date: 20110616
  Receipt Date: 20110607
  Transmission Date: 20111010
  Serious: Yes (Hospitalization)
  Sender: FDA-Public Use
  Company Number: US-ASTRAZENECA-2011SE20336

PATIENT
  Age: 65 Year
  Sex: Female

DRUGS (3)
  1. RHINOCORT [Suspect]
     Route: 045
  2. NEXIUM [Concomitant]
     Route: 048
  3. SEROQUEL XR [Suspect]
     Route: 048

REACTIONS (5)
  - SINUSITIS [None]
  - NASAL CONGESTION [None]
  - DYSPNOEA [None]
  - ABNORMAL BEHAVIOUR [None]
  - DRUG DOSE OMISSION [None]
